FAERS Safety Report 20084896 (Version 10)
Quarter: 2023Q2

REPORT INFORMATION
  Report Type: Report from Study
  Country: PE (occurrence: PE)
  Receive Date: 20211118
  Receipt Date: 20230412
  Transmission Date: 20230722
  Serious: Yes (Hospitalization, Other)
  Sender: FDA-Public Use
  Company Number: PE-NOVARTISPH-NVSC2021PE162717

PATIENT
  Age: 50 Year
  Sex: Female
  Weight: 103 kg

DRUGS (4)
  1. KISQALI [Suspect]
     Active Substance: RIBOCICLIB
     Indication: Breast cancer
     Dosage: 600 MG, QD
     Route: 048
     Dates: start: 202001
  2. KISQALI [Suspect]
     Active Substance: RIBOCICLIB
     Dosage: 600 MG, QD
     Route: 048
     Dates: start: 20210426
  3. KISQALI [Suspect]
     Active Substance: RIBOCICLIB
     Dosage: 600 MG, QD
     Route: 048
     Dates: start: 20210614
  4. KISQALI [Suspect]
     Active Substance: RIBOCICLIB
     Dosage: 600 MG, QD
     Route: 048
     Dates: start: 20210906

REACTIONS (22)
  - Noninfective encephalitis [Unknown]
  - Arrhythmia [Unknown]
  - Weight increased [Unknown]
  - Neuropathy peripheral [Unknown]
  - Loss of consciousness [Unknown]
  - Metastases to central nervous system [Unknown]
  - Tumour marker increased [Unknown]
  - Decreased immune responsiveness [Unknown]
  - Dry skin [Unknown]
  - Onychoclasis [Unknown]
  - Nerve injury [Unknown]
  - Malaise [Unknown]
  - Dysstasia [Unknown]
  - Toxicity to various agents [Unknown]
  - Hypoaesthesia [Unknown]
  - Cerebral disorder [Unknown]
  - Gait disturbance [Unknown]
  - Arthralgia [Unknown]
  - Skin lesion [Unknown]
  - Balance disorder [Unknown]
  - Tumour marker decreased [Unknown]
  - Off label use [Unknown]

NARRATIVE: CASE EVENT DATE: 20210714
